FAERS Safety Report 15561427 (Version 1)
Quarter: 2018Q4

REPORT INFORMATION
  Report Type: Spontaneous
  Country: US (occurrence: US)
  Receive Date: 20181029
  Receipt Date: 20181029
  Transmission Date: 20190205
  Serious: Yes (Other)
  Sender: FDA-Public Use
  Company Number: US-GLAXOSMITHKLINE-US2018GSK192355

PATIENT
  Sex: Male

DRUGS (2)
  1. ANORO ELLIPTA [Suspect]
     Active Substance: UMECLIDINIUM BROMIDE\VILANTEROL TRIFENATATE
     Indication: CHRONIC OBSTRUCTIVE PULMONARY DISEASE
     Dosage: UNK
     Route: 055
     Dates: start: 201606
  2. OFEV [Concomitant]
     Active Substance: NINTEDANIB

REACTIONS (6)
  - Diabetes mellitus [Unknown]
  - Depression [Unknown]
  - Asthma [Unknown]
  - Heart rate irregular [Unknown]
  - Heart rate increased [Unknown]
  - Anxiety [Unknown]
